FAERS Safety Report 20847930 (Version 1)
Quarter: 2022Q2

REPORT INFORMATION
  Report Type: Spontaneous
  Country: US (occurrence: None)
  Receive Date: 20220518
  Receipt Date: 20220518
  Transmission Date: 20220721
  Serious: Yes (Hospitalization)
  Sender: FDA-Public Use
  Company Number: None

PATIENT
  Sex: Female

DRUGS (1)
  1. BYDUREON BCISE [Suspect]
     Active Substance: EXENATIDE
     Indication: Arteriosclerosis coronary artery
     Dosage: OTHER QUANTITY : 2 MG/0.85ML;?FREQUENCY : WEEKLY;?
     Route: 058
     Dates: start: 20200623

REACTIONS (2)
  - Mechanical ventilation [None]
  - Therapy interrupted [None]
